FAERS Safety Report 4895282-6 (Version None)
Quarter: 2005Q4

REPORT INFORMATION
  Report Type: 
  Country: None (occurrence: None)
  Receive Date: 20051220
  Receipt Date: 20050628
  Transmission Date: 20060501
  Serious: Yes (Other)
  Sender: FDA-Public Use
  Company Number: US138973

PATIENT
  Age: 46 Year
  Sex: Female

DRUGS (7)
  1. ENBREL [Suspect]
     Indication: PSORIATIC ARTHROPATHY
     Dosage: 50 MG, 1 IN 1 WEEKS
     Dates: start: 20041001, end: 20041201
  2. GLIBENCLAMIDE [Concomitant]
  3. AVANDIA [Concomitant]
  4. LISINOPRIL [Concomitant]
  5. OXYCONTIN [Concomitant]
  6. DESIPRAMINE HCL [Concomitant]
  7. GABAPENTIN [Concomitant]

REACTIONS (1)
  - CUTANEOUS LUPUS ERYTHEMATOSUS [None]
